FAERS Safety Report 5719267-2 (Version None)
Quarter: 2008Q2

REPORT INFORMATION
  Report Type: 
  Country: None (occurrence: None)
  Receive Date: 20080425
  Receipt Date: 20080425
  Transmission Date: 20081010
  Serious: No
  Sender: FDA-Public Use
  Company Number: None

PATIENT
  Age: 79 Year
  Sex: Male
  Weight: 79.7 kg

DRUGS (1)
  1. SIMVASTATIN [Suspect]
     Indication: DYSLIPIDAEMIA
     Dosage: 80MG 1/2 TAB Q HS PO
     Route: 048
     Dates: start: 20080323

REACTIONS (6)
  - BLISTER [None]
  - BURNING SENSATION [None]
  - GLOSSODYNIA [None]
  - PAIN [None]
  - PALATAL DISORDER [None]
  - PHARMACEUTICAL PRODUCT COMPLAINT [None]
